FAERS Safety Report 6879470-5 (Version None)
Quarter: 2010Q3

REPORT INFORMATION
  Report Type: 
  Country: None (occurrence: None)
  Receive Date: 20100728
  Receipt Date: 20100719
  Transmission Date: 20110219
  Serious: Yes (Death, Hospitalization)
  Sender: FDA-Public Use
  Company Number: GXKR2010NL08018

PATIENT
  Age: 8 Year
  Sex: Male

DRUGS (19)
  1. PREDNISONE (NGX) [Suspect]
     Indication: IMMUNOSUPPRESSION
     Dosage: 0.3 MG/KG/DAY
  2. FLUDARABINE (NGX) [Suspect]
     Indication: IMMUNOSUPPRESSION
     Dosage: 30 MG/M2
  3. MYCOPHENOLATE MOFETIL [Suspect]
     Indication: IMMUNOSUPPRESSION
  4. TREOSULFAN [Suspect]
     Indication: IMMUNOSUPPRESSION
     Dosage: 14 MG/M2
  5. CYCLOPHOSPHAMIDE [Suspect]
     Indication: IMMUNOSUPPRESSION
     Dosage: 50 MG/KG
  6. BASILIXIMAB [Suspect]
     Indication: IMMUNOSUPPRESSION
  7. TACROLIMUS [Suspect]
     Indication: IMMUNOSUPPRESSION
  8. ANTITHYMOCYTE IMMUNOGLOBULIN [Suspect]
     Indication: IMMUNOSUPPRESSION
  9. MELPHALAN [Suspect]
     Indication: IMMUNOSUPPRESSION
     Dosage: 70 MG/M2, DAY 1
  10. ALEMTUZUMAB [Suspect]
     Indication: IMMUNOSUPPRESSION
     Dosage: TOTAL DOSE 0.5 MG/KG,UNK
  11. DEFIBROTIDE [Concomitant]
     Indication: VENOOCCLUSIVE DISEASE
  12. IMMU-G [Concomitant]
     Route: 042
  13. PENTAMIDINE ISETHIONATE [Concomitant]
     Indication: INFECTION PROPHYLAXIS
  14. CHENODEOXYCHOLIC ACID [Concomitant]
  15. URSODIOL [Concomitant]
  16. HEMATIN [Concomitant]
  17. AMPHOTERICIN B [Concomitant]
  18. POLYMYCIN B SULFATE [Concomitant]
  19. NEOMYCIN [Concomitant]

REACTIONS (10)
  - DEHYDRATION [None]
  - EAR INFECTION [None]
  - GASTROENTERITIS VIRAL [None]
  - HERPES ZOSTER [None]
  - IMMUNE SYSTEM DISORDER [None]
  - MULTI-ORGAN FAILURE [None]
  - OPTIC NEURITIS [None]
  - RESPIRATORY FAILURE [None]
  - RETINITIS [None]
  - STAPHYLOCOCCAL SKIN INFECTION [None]
